FAERS Safety Report 6265909-5 (Version None)
Quarter: 2009Q3

REPORT INFORMATION
  Report Type: 
  Country: None (occurrence: None)
  Receive Date: 20090709
  Receipt Date: 20090709
  Transmission Date: 20100115
  Serious: Yes (Hospitalization)
  Sender: FDA-Public Use
  Company Number: None

PATIENT
  Age: 37 Year
  Sex: Female
  Weight: 79.3795 kg

DRUGS (1)
  1. CREST PRO WHITENING RINSE NA CREST [Suspect]
     Indication: DENTAL DISORDER PROPHYLAXIS
     Dates: start: 20090621, end: 20090621

REACTIONS (2)
  - CAUSTIC INJURY [None]
  - DEHYDRATION [None]
